FAERS Safety Report 7548332-2 (Version None)
Quarter: 2011Q2

REPORT INFORMATION
  Report Type: 
  Country: None (occurrence: None)
  Receive Date: 20110615
  Receipt Date: 20110613
  Transmission Date: 20111010
  Serious: No
  Sender: FDA-Public Use
  Company Number: US-PFIZER INC-A106658

PATIENT
  Sex: Male

DRUGS (3)
  1. LIPITOR [Interacting]
     Dosage: UNK
  2. ZITHROMAX [Suspect]
     Dosage: UNK
  3. CLARITHROMYCIN [Interacting]
     Dosage: UNK

REACTIONS (2)
  - MYALGIA [None]
  - DRUG INTERACTION [None]
